FAERS Safety Report 23612398 (Version 1)
Quarter: 2024Q1

REPORT INFORMATION
  Report Type: Spontaneous
  Country: US (occurrence: US)
  Receive Date: 20240308
  Receipt Date: 20240308
  Transmission Date: 20240410
  Serious: No
  Sender: FDA-Public Use
  Company Number: US-PFIZER INC-PV202400007186

PATIENT
  Age: 71 Year
  Sex: Female
  Weight: 73.9 kg

DRUGS (2)
  1. IBRANCE [Suspect]
     Active Substance: PALBOCICLIB
     Indication: Bone cancer
     Dosage: 125 MG, DAILY
     Dates: start: 202307
  2. LETROZOLE [Concomitant]
     Active Substance: LETROZOLE
     Indication: Bone cancer
     Dosage: 2.5 MG, DAILY
     Dates: start: 202307

REACTIONS (3)
  - White blood cell count decreased [Not Recovered/Not Resolved]
  - Fatigue [Not Recovered/Not Resolved]
  - Off label use [Unknown]

NARRATIVE: CASE EVENT DATE: 20230701
